FAERS Safety Report 22381907 (Version 8)
Quarter: 2024Q1

REPORT INFORMATION
  Report Type: Report from Study
  Country: MX (occurrence: MX)
  Receive Date: 20230530
  Receipt Date: 20240226
  Transmission Date: 20240410
  Serious: Yes (Other)
  Sender: FDA-Public Use
  Company Number: MX-002147023-NVSC2023MX072096

PATIENT
  Age: 56 Year
  Sex: Female
  Weight: 83 kg

DRUGS (3)
  1. TASIGNA [Suspect]
     Active Substance: NILOTINIB
     Indication: Chronic myeloid leukaemia
     Dosage: UNK
     Route: 048
     Dates: start: 201401
  2. TASIGNA [Suspect]
     Active Substance: NILOTINIB
     Dosage: UNK
     Route: 048
  3. TASIGNA [Suspect]
     Active Substance: NILOTINIB
     Dosage: UNK
     Route: 048

REACTIONS (20)
  - Facial paralysis [Unknown]
  - Speech disorder [Unknown]
  - Eye movement disorder [Unknown]
  - Alopecia [Unknown]
  - Early satiety [Unknown]
  - Crying [Unknown]
  - Anger [Unknown]
  - Anxiety [Unknown]
  - Emotional disorder [Unknown]
  - Fatigue [Unknown]
  - Constipation [Unknown]
  - Weight decreased [Unknown]
  - Depression [Unknown]
  - Fear [Unknown]
  - Insomnia [Unknown]
  - Feeling abnormal [Unknown]
  - Malaise [Unknown]
  - Vomiting [Recovered/Resolved]
  - Diarrhoea [Recovered/Resolved]
  - Musculoskeletal chest pain [Unknown]

NARRATIVE: CASE EVENT DATE: 20231213
